FAERS Safety Report 18490289 (Version 2)
Quarter: 2025Q2

REPORT INFORMATION
  Report Type: Report from Study
  Country: US (occurrence: US)
  Receive Date: 20201111
  Receipt Date: 20250619
  Transmission Date: 20250717
  Serious: Yes (Hospitalization)
  Sender: AUROBINDO
  Company Number: US-MYLANLABS-2020M1093763

PATIENT
  Age: 25 Year
  Sex: Female

DRUGS (3)
  1. BUPROPION HYDROCHLORIDE [Suspect]
     Active Substance: BUPROPION HYDROCHLORIDE
     Indication: Product used for unknown indication
     Route: 048
  2. CITALOPRAM [Suspect]
     Active Substance: CITALOPRAM
     Indication: Product used for unknown indication
     Route: 048
  3. CYPROHEPTADINE [Concomitant]
     Active Substance: CYPROHEPTADINE
     Indication: Serotonin syndrome
     Route: 065

REACTIONS (7)
  - Serotonin syndrome [Unknown]
  - Intentional overdose [Unknown]
  - Suicide attempt [Unknown]
  - Muscle rigidity [Unknown]
  - Myoclonus [Unknown]
  - Clonus [Unknown]
  - Hyperreflexia [Unknown]
